FAERS Safety Report 4994958-X (Version None)
Quarter: 2006Q2

REPORT INFORMATION
  Report Type: 
  Country: None (occurrence: None)
  Receive Date: 20060508
  Receipt Date: 20050926
  Transmission Date: 20061013
  Serious: Yes (Hospitalization, Other)
  Sender: FDA-Public Use
  Company Number: PHEH2005US10714

PATIENT
  Age: 68 Year
  Sex: Female

DRUGS (9)
  1. AREDIA [Suspect]
     Indication: METASTASES TO BONE
     Dosage: UNK, UNK
     Dates: start: 20010201, end: 20020501
  2. XALATAN [Concomitant]
  3. ALBUTEROL [Concomitant]
  4. ALLEGRA [Concomitant]
  5. ACCUPRIL [Concomitant]
  6. ARIMIDEX [Concomitant]
     Dates: start: 20010201
  7. NORVASC [Concomitant]
  8. PAXIL [Concomitant]
  9. VICODIN [Concomitant]

REACTIONS (31)
  - ABSCESS [None]
  - ABSCESS DRAINAGE [None]
  - ANKLE FRACTURE [None]
  - ASTHENIA [None]
  - BACTERIAL INFECTION [None]
  - BONE DEBRIDEMENT [None]
  - BONE LESION [None]
  - CARBOHYDRATE ANTIGEN 27.29 INCREASED [None]
  - CONSTIPATION [None]
  - DIZZINESS [None]
  - DYSPEPSIA [None]
  - FALL [None]
  - FISTULA [None]
  - GASTROINTESTINAL DISORDER [None]
  - HYPOAESTHESIA [None]
  - JAW FRACTURE [None]
  - MACROCYTOSIS [None]
  - MALIGNANT NEOPLASM PROGRESSION [None]
  - MEAN CELL VOLUME ABNORMAL [None]
  - OEDEMA PERIPHERAL [None]
  - ORAL DISCOMFORT [None]
  - OSTEOMYELITIS CHRONIC [None]
  - OSTEOMYELITIS DRAINAGE [None]
  - OSTEONECROSIS [None]
  - PAIN IN JAW [None]
  - STOMACH DISCOMFORT [None]
  - SWELLING [None]
  - TOOTH DISORDER [None]
  - TOOTH EXTRACTION [None]
  - WALKING AID USER [None]
  - WOUND SECRETION [None]
